FAERS Safety Report 6404162-6 (Version None)
Quarter: 2009Q4

REPORT INFORMATION
  Report Type: 
  Country: None (occurrence: None)
  Receive Date: 20091016
  Receipt Date: 20090930
  Transmission Date: 20100525
  Serious: Yes (Death)
  Sender: FDA-Public Use
  Company Number: NO-ALEXION-A200900776

PATIENT

DRUGS (2)
  1. SOLIRIS [Suspect]
     Indication: PAROXYSMAL NOCTURNAL HAEMOGLOBINURIA
     Dosage: 600 MG, SINGLE
     Route: 042
     Dates: start: 20090903, end: 20090903
  2. ECALTA [Concomitant]
     Indication: CANDIDIASIS

REACTIONS (2)
  - BLOOD LACTATE DEHYDROGENASE INCREASED [None]
  - DEATH [None]
